FAERS Safety Report 5595962-3 (Version None)
Quarter: 2008Q1

REPORT INFORMATION
  Report Type: 
  Country: None (occurrence: None)
  Receive Date: 20080118
  Receipt Date: 20080111
  Transmission Date: 20080703
  Serious: Yes (Life-Threatening, Other)
  Sender: FDA-Public Use
  Company Number: IT-ELI_LILLY_AND_COMPANY-IT200801002429

PATIENT
  Age: 66 Year
  Sex: Male

DRUGS (2)
  1. XIGRIS [Suspect]
     Indication: SEPTIC SHOCK
     Dosage: UNK, UNKNOWN
     Route: 042
     Dates: start: 20080110, end: 20080111
  2. ANTIBIOTICS [Concomitant]
     Dosage: UNK, UNKNOWN

REACTIONS (3)
  - ACUTE RESPIRATORY DISTRESS SYNDROME [None]
  - INTRA-ABDOMINAL HAEMORRHAGE [None]
  - SEPTIC SHOCK [None]
